FAERS Safety Report 25341326 (Version 1)
Quarter: 2025Q2

REPORT INFORMATION
  Report Type: Spontaneous
  Country: JP (occurrence: JP)
  Receive Date: 20250521
  Receipt Date: 20250521
  Transmission Date: 20250716
  Serious: Yes (Hospitalization)
  Sender: BIOGEN
  Company Number: JP-BIOGEN-2022BI01125063

PATIENT
  Sex: Female

DRUGS (6)
  1. AVONEX [Suspect]
     Active Substance: INTERFERON BETA-1A
     Indication: Multiple sclerosis
     Route: 050
     Dates: start: 201605
  2. AVONEX [Suspect]
     Active Substance: INTERFERON BETA-1A
  3. AVONEX [Suspect]
     Active Substance: INTERFERON BETA-1A
  4. AVONEX [Suspect]
     Active Substance: INTERFERON BETA-1A
  5. PREDONINE [Concomitant]
     Active Substance: PREDNISOLONE
     Route: 050
  6. AMLODIPINE [Concomitant]
     Active Substance: AMLODIPINE BESYLATE
     Indication: Hypertension
     Route: 050

REACTIONS (6)
  - Pain in extremity [Unknown]
  - Injection site cellulitis [Not Recovered/Not Resolved]
  - Muscle spasms [Unknown]
  - Hypertonia [Unknown]
  - Varicella zoster virus infection [Unknown]
  - Injection site calcification [Not Recovered/Not Resolved]

NARRATIVE: CASE EVENT DATE: 20220301
